FAERS Safety Report 17289018 (Version 1)
Quarter: 2020Q1

REPORT INFORMATION
  Report Type: Spontaneous
  Country: US (occurrence: US)
  Receive Date: 20200120
  Receipt Date: 20200120
  Transmission Date: 20200409
  Serious: No
  Sender: FDA-Public Use
  Company Number: US-KYOWAKIRIN-2020BKK000433

PATIENT

DRUGS (1)
  1. SANCUSO [Suspect]
     Active Substance: GRANISETRON
     Indication: CHEMOTHERAPY
     Dosage: 1 PATCH Q4DAYS OF CHEMO CYCLE Q3WKS
     Route: 061
     Dates: start: 20200111

REACTIONS (2)
  - Product adhesion issue [Recovered/Resolved]
  - Intentional product misuse [Recovered/Resolved]

NARRATIVE: CASE EVENT DATE: 20200112
